FAERS Safety Report 9525163 (Version 3)
Quarter: 2014Q2

REPORT INFORMATION
  Report Type: Spontaneous
  Country: US (occurrence: US)
  Receive Date: 20130916
  Receipt Date: 20140609
  Transmission Date: 20141212
  Serious: Yes (Death)
  Sender: FDA-Public Use
  Company Number: US-PFIZER INC-2013262299

PATIENT
  Age: 81 Year
  Sex: Male
  Weight: 87.98 kg

DRUGS (11)
  1. SUTENT [Suspect]
     Indication: RENAL CELL CARCINOMA
     Dosage: 25 MG, 1X/DAY
     Dates: start: 20130808
  2. SUTENT [Suspect]
     Dosage: 10 MG, CYCLIC
     Dates: start: 2013, end: 201402
  3. SUTENT [Suspect]
     Dosage: UNK
     Dates: end: 20140306
  4. AMLODIPINE [Concomitant]
     Dosage: UNK
  5. HYDRALAZINE [Concomitant]
     Dosage: UNK
  6. TERAZOSIN [Concomitant]
     Dosage: UNK
  7. SENSIPAR [Concomitant]
     Dosage: UNK
  8. VITAMIN D3 [Concomitant]
  9. FOSRENOL [Concomitant]
     Dosage: UNK
  10. IMODIUM A-D [Concomitant]
     Dosage: UNK
  11. LISINOPRIL [Concomitant]
     Dosage: UNK

REACTIONS (5)
  - Disease progression [Fatal]
  - Renal cell carcinoma [Fatal]
  - Dyspnoea exertional [Unknown]
  - Blood pressure increased [Recovering/Resolving]
  - Dyspnoea [Unknown]
